FAERS Safety Report 9557044 (Version 5)
Quarter: 2014Q1

REPORT INFORMATION
  Report Type: Report from Study
  Country: US (occurrence: US)
  Receive Date: 20130926
  Receipt Date: 20140214
  Transmission Date: 20141002
  Serious: Yes (Hospitalization)
  Sender: FDA-Public Use
  Company Number: US-PFIZER INC-2013267106

PATIENT
  Age: 48 Year
  Sex: Female
  Weight: 56 kg

DRUGS (19)
  1. AXITINIB [Suspect]
     Indication: HEAD AND NECK CANCER
     Dosage: 3 MG, 2X/DAY
     Route: 048
     Dates: start: 20130708, end: 20130730
  2. DEXAMETHASONE [Suspect]
     Indication: NAUSEA
     Dosage: 20 MG, DAILY X 5 DAYS
     Route: 048
     Dates: start: 20130724
  3. DEXAMETHASONE [Suspect]
     Indication: VOMITING
     Dosage: 16 MG, DAILY X 2 DAYS
     Route: 048
  4. DEXAMETHASONE [Suspect]
     Dosage: 12 MG, DAILY X 2 DAYS
     Route: 048
  5. DEXAMETHASONE [Suspect]
     Dosage: 8 MG, DAILY
     Route: 048
  6. PROMETHAZINE [Concomitant]
  7. ALPRAZOLAM [Concomitant]
  8. VITAMIN C [Concomitant]
  9. VITAMIN D3 [Concomitant]
  10. CELEXA [Concomitant]
  11. FENTANYL [Concomitant]
  12. FLAXSEED OIL [Concomitant]
  13. ADVAIR DISKUS [Concomitant]
  14. GINSENG [Concomitant]
  15. IBUPROFEN [Concomitant]
  16. MILK THISTLE [Concomitant]
  17. OMEGA 3 [Concomitant]
  18. OXYCONTIN [Concomitant]
  19. ROXICODONE [Concomitant]

REACTIONS (1)
  - Pneumonia [Unknown]
